FAERS Safety Report 9410954 (Version 1)
Quarter: 2013Q3

REPORT INFORMATION
  Report Type: Spontaneous
  Country: JP (occurrence: JP)
  Receive Date: 20130719
  Receipt Date: 20130719
  Transmission Date: 20140515
  Serious: Yes (Hospitalization, Other)
  Sender: FDA-Public Use
  Company Number: JP-BAYER-2013-085746

PATIENT
  Sex: Female

DRUGS (6)
  1. NIFEDIPINE [Suspect]
     Dosage: UNK
     Route: 064
  2. NIFEDIPINE [Suspect]
     Dosage: UNK
     Route: 064
  3. BETAMETHASONE [Concomitant]
     Indication: NEONATAL RESPIRATORY DISTRESS SYNDROME PROPHYLAXIS
     Dosage: 12 MG, TWICE
     Route: 064
  4. BETAMETHASONE [Concomitant]
     Indication: NEONATAL RESPIRATORY DISTRESS SYNDROME PROPHYLAXIS
     Dosage: 12 MG, TWICE
     Route: 064
  5. RINGER LACTATE [CALCIUM CHLORIDE DIHYDRATE,POTASSIUM CHLORIDE,SODI [Concomitant]
     Indication: OLIGOHYDRAMNIOS
     Dosage: 250 ML
  6. RINGER LACTATE [CALCIUM CHLORIDE DIHYDRATE,POTASSIUM CHLORIDE,SODI [Concomitant]
     Indication: OLIGOHYDRAMNIOS
     Dosage: 250 ML

REACTIONS (4)
  - Premature baby [None]
  - Low birth weight baby [None]
  - Sepsis [None]
  - Foetal exposure during pregnancy [None]
